FAERS Safety Report 4923584-3 (Version None)
Quarter: 2006Q1

REPORT INFORMATION
  Report Type: 
  Country: None (occurrence: None)
  Receive Date: 20060227
  Receipt Date: 20030502
  Transmission Date: 20060701
  Serious: Yes (Hospitalization)
  Sender: FDA-Public Use
  Company Number: JP-BRISTOL-MYERS SQUIBB COMPANY-12264198

PATIENT
  Age: 47 Year
  Sex: Male

DRUGS (9)
  1. EFAVIRENZ [Suspect]
     Indication: ACQUIRED IMMUNODEFICIENCY SYNDROME
     Route: 048
     Dates: start: 20001221, end: 20030420
  2. EFAVIRENZ [Suspect]
     Indication: HIV INFECTION
     Route: 048
     Dates: start: 20001221, end: 20030420
  3. ZERIT [Suspect]
     Indication: ACQUIRED IMMUNODEFICIENCY SYNDROME
     Route: 048
     Dates: start: 20001221, end: 20020224
  4. ZERIT [Suspect]
     Indication: HIV INFECTION
     Route: 048
     Dates: start: 20001221, end: 20020224
  5. EPIVIR [Suspect]
     Indication: ACQUIRED IMMUNODEFICIENCY SYNDROME
     Route: 048
     Dates: start: 20001221
  6. EPIVIR [Suspect]
     Indication: HIV INFECTION
     Route: 048
     Dates: start: 20001221
  7. RETROVIR [Suspect]
     Indication: ACQUIRED IMMUNODEFICIENCY SYNDROME
     Route: 048
     Dates: start: 20020225
  8. RETROVIR [Suspect]
     Indication: HIV INFECTION
     Route: 048
     Dates: start: 20020225
  9. COTRIM [Concomitant]
     Dosage: DOSAGE FORM = TABLET
     Route: 048
     Dates: start: 20010201, end: 20040331

REACTIONS (5)
  - HERPES SIMPLEX [None]
  - HYPERLACTACIDAEMIA [None]
  - HYPOAESTHESIA [None]
  - NAUSEA [None]
  - VOMITING [None]
